FAERS Safety Report 9362207 (Version 1)
Quarter: 2013Q2

REPORT INFORMATION
  Report Type: Spontaneous
  Country: US (occurrence: US)
  Receive Date: 20130622
  Receipt Date: 20130622
  Transmission Date: 20140414
  Serious: No
  Sender: FDA-Public Use
  Company Number: US-B.I. PHARMACEUTICALS,INC./RIDGEFIELD-2013-BI-17100BP

PATIENT
  Age: 73 Year
  Sex: Female
  Weight: 49 kg

DRUGS (7)
  1. ZANTAC 150 (RANITIDINE HYDROCHLORIDE) [Suspect]
     Indication: DYSPEPSIA
     Dosage: 300 MG
     Route: 048
     Dates: start: 20130603
  2. CITRACAL [Concomitant]
  3. DIOVAN [Concomitant]
     Indication: HYPERTENSION
     Dosage: 160 MG
     Route: 048
  4. LEVOXIL [Concomitant]
     Indication: THYROID NEOPLASM
     Dosage: 0.088 MG
     Route: 048
  5. MULTI VITAMINS [Concomitant]
     Dosage: 1 ANZ
     Route: 048
  6. METOPROLOL [Concomitant]
     Indication: HYPERTENSION
     Dosage: 50 MG
     Route: 048
  7. GLUCOSAMINE [Concomitant]
     Dosage: 2 ANZ
     Route: 048

REACTIONS (1)
  - Muscular weakness [Not Recovered/Not Resolved]
